FAERS Safety Report 12109195 (Version 1)
Quarter: 2016Q1

REPORT INFORMATION
  Report Type: Spontaneous
  Country: FR (occurrence: FR)
  Receive Date: 20160224
  Receipt Date: 20160224
  Transmission Date: 20160526
  Serious: Yes (Other)
  Sender: FDA-Public Use
  Company Number: FR-SA-2016SA033210

PATIENT
  Age: 84 Year
  Sex: Male

DRUGS (8)
  1. EDUCTYL [Concomitant]
     Active Substance: POTASSIUM BITARTRATE\SODIUM BICARBONATE
     Route: 065
  2. MYTELASE [Suspect]
     Active Substance: AMBENONIUM CHLORIDE
     Indication: MUSCULAR WEAKNESS
     Route: 048
  3. LACTULOSE. [Concomitant]
     Active Substance: LACTULOSE
     Route: 065
  4. AMLODIPINE [Concomitant]
     Active Substance: AMLODIPINE BESYLATE
     Indication: HYPERTENSION
     Route: 065
  5. EXELON [Suspect]
     Active Substance: RIVASTIGMINE TARTRATE
     Indication: DEMENTIA WITH LEWY BODIES
     Route: 062
  6. LANTUS [Concomitant]
     Active Substance: INSULIN GLARGINE
     Indication: TYPE 2 DIABETES MELLITUS
     Route: 065
  7. MYTELASE [Suspect]
     Active Substance: AMBENONIUM CHLORIDE
     Indication: MUSCULAR WEAKNESS
     Route: 048
     Dates: end: 20160122
  8. ASPIRINE [Concomitant]
     Active Substance: ASPIRIN
     Route: 065

REACTIONS (1)
  - Cholinergic syndrome [Recovering/Resolving]

NARRATIVE: CASE EVENT DATE: 20160122
